FAERS Safety Report 7920437-3 (Version None)
Quarter: 2011Q4

REPORT INFORMATION
  Report Type: 
  Country: None (occurrence: None)
  Receive Date: 20111117
  Receipt Date: 20111104
  Transmission Date: 20120403
  Serious: Yes (Hospitalization)
  Sender: FDA-Public Use
  Company Number: PHHY2011DE098159

PATIENT
  Sex: Female

DRUGS (1)
  1. FEMARA [Suspect]
     Indication: BREAST CANCER
     Dosage: 2.5 MG/ DAY
     Dates: end: 20111107

REACTIONS (3)
  - ABDOMINAL PAIN [None]
  - HEPATIC ENZYME INCREASED [None]
  - PANCREATITIS [None]
